FAERS Safety Report 22059851 (Version 1)
Quarter: 2023Q1

REPORT INFORMATION
  Report Type: Spontaneous
  Country: US (occurrence: None)
  Receive Date: 20230302
  Receipt Date: 20230302
  Transmission Date: 20230417
  Serious: Yes (Hospitalization)
  Sender: FDA-Public Use
  Company Number: None

PATIENT
  Age: 62 Year
  Sex: Male
  Weight: 84.1 kg

DRUGS (13)
  1. SOFOSBUVIR\VELPATASVIR [Suspect]
     Active Substance: SOFOSBUVIR\VELPATASVIR
     Indication: Hepatitis C
     Dosage: FREQUENCY : DAILY;?
     Route: 048
     Dates: start: 20220928, end: 20230120
  2. ALBUTEROL [Concomitant]
     Active Substance: ALBUTEROL
  3. AMLODIPINE [Concomitant]
     Active Substance: AMLODIPINE BESYLATE
  4. ASPIRIN [Concomitant]
     Active Substance: ASPIRIN
  5. BUSPIRONE [Concomitant]
     Active Substance: BUSPIRONE HYDROCHLORIDE
  6. CLONIDINE [Concomitant]
     Active Substance: CLONIDINE
  7. FLUOXETINE [Concomitant]
     Active Substance: FLUOXETINE HYDROCHLORIDE
  8. HYDROXYZINE [Concomitant]
     Active Substance: HYDROXYZINE HYDROCHLORIDE
  9. KETOCONAZOLE [Concomitant]
     Active Substance: KETOCONAZOLE
  10. LACTULOSE [Concomitant]
     Active Substance: LACTULOSE
  11. LOSARTAN [Concomitant]
     Active Substance: LOSARTAN
  12. TAMSULOSIN [Concomitant]
     Active Substance: TAMSULOSIN
  13. TERBINAFINE [Concomitant]
     Active Substance: TERBINAFINE

REACTIONS (1)
  - Interstitial lung disease [None]

NARRATIVE: CASE EVENT DATE: 20230120
